FAERS Safety Report 8098598-8 (Version None)
Quarter: 2012Q1

REPORT INFORMATION
  Report Type: 
  Country: None (occurrence: None)
  Receive Date: 20120129
  Receipt Date: 20110914
  Transmission Date: 20120608
  Serious: No
  Sender: FDA-Public Use
  Company Number: US-ABBOTT-11P-163-0854983-00

PATIENT
  Sex: Female
  Weight: 53.572 kg

DRUGS (8)
  1. UNKNOWN MEDICATION [Concomitant]
     Indication: PANIC DISORDER
  2. VITAMIN B-12 [Concomitant]
     Indication: VITAMIN B12 DEFICIENCY
  3. UNKNOWN MEDICATION [Concomitant]
     Indication: PALPITATIONS
  4. HUMIRA [Suspect]
     Indication: ANKYLOSING SPONDYLITIS
     Route: 058
     Dates: start: 20110824
  5. UNKNOWN MEDICATION [Concomitant]
     Indication: ANXIETY
  6. UNKNOWN MEDICATION [Concomitant]
     Indication: GASTROOESOPHAGEAL REFLUX DISEASE
  7. VITAMIN D [Concomitant]
     Indication: VITAMIN D DEFICIENCY
  8. UNKNOWN MEDICATION [Concomitant]
     Indication: DEPRESSION

REACTIONS (1)
  - PAIN [None]
